FAERS Safety Report 8180403-2 (Version None)
Quarter: 2012Q1

REPORT INFORMATION
  Report Type: 
  Country: None (occurrence: None)
  Receive Date: 20120229
  Receipt Date: 20120214
  Transmission Date: 20120608
  Serious: Yes (Hospitalization)
  Sender: FDA-Public Use
  Company Number: DE-007783

PATIENT
  Age: 35 Year
  Sex: Female

DRUGS (9)
  1. CRINONE [Concomitant]
  2. ALFENTANIL [Concomitant]
  3. PANTROPRAZOL /01263202/ [Concomitant]
  4. LEVOFLOXACIN [Concomitant]
  5. MENOGON HP (MENOGON HP) (150 IU, 225 IU, 300 IU) [Suspect]
     Indication: IN VITRO FERTILISATION
     Dosage: 150 IU SUBCUTANEOUS; 225 IU SUBCUTANEOUS; 300 IU SUBCUTANEOUS
     Route: 058
     Dates: start: 20120123, end: 20120124
  6. MENOGON HP (MENOGON HP) (150 IU, 225 IU, 300 IU) [Suspect]
     Indication: IN VITRO FERTILISATION
     Dosage: 150 IU SUBCUTANEOUS; 225 IU SUBCUTANEOUS; 300 IU SUBCUTANEOUS
     Route: 058
     Dates: start: 20120114, end: 20120118
  7. MENOGON HP (MENOGON HP) (150 IU, 225 IU, 300 IU) [Suspect]
     Indication: IN VITRO FERTILISATION
     Dosage: 150 IU SUBCUTANEOUS; 225 IU SUBCUTANEOUS; 300 IU SUBCUTANEOUS
     Route: 058
     Dates: start: 20120119, end: 20120122
  8. AMOXICILLIN [Concomitant]
  9. PROPROFOL [Concomitant]

REACTIONS (4)
  - SEROMA [None]
  - ENDOMETRITIS [None]
  - PYREXIA [None]
  - ABDOMINAL PAIN [None]
